FAERS Safety Report 17076913 (Version 1)
Quarter: 2019Q4

REPORT INFORMATION
  Report Type: Spontaneous
  Country: US (occurrence: US)
  Receive Date: 20191126
  Receipt Date: 20191126
  Transmission Date: 20200122
  Serious: No
  Sender: FDA-Public Use
  Company Number: US-BAUSCH-BL-2019-058392

PATIENT
  Sex: Female

DRUGS (4)
  1. LUMIFY [Suspect]
     Active Substance: BRIMONIDINE TARTRATE
     Dosage: 1 DROP IN EACH EYE 1-2 TIMES A DAY
     Route: 047
     Dates: start: 201910
  2. XIIDRA [Concomitant]
     Active Substance: LIFITEGRAST
     Indication: PRODUCT USED FOR UNKNOWN INDICATION
     Route: 047
  3. LUMIFY [Suspect]
     Active Substance: BRIMONIDINE TARTRATE
     Indication: OCULAR HYPERAEMIA
     Dosage: 1 DROP IN EACH EYE 1-2 TIMES A DAY
     Route: 047
     Dates: start: 201810
  4. LUMIFY [Suspect]
     Active Substance: BRIMONIDINE TARTRATE
     Dosage: STARTED SOMETIME IN THE WEEK BEFORE THE DATE OF THIS REPORT, 1 DROP IN EACH EYE 1-2 TIMES A DAY
     Route: 047
     Dates: start: 201910, end: 201910

REACTIONS (4)
  - Eye irritation [Recovering/Resolving]
  - Product quality issue [Unknown]
  - Pinguecula [Unknown]
  - Ocular hyperaemia [Recovering/Resolving]

NARRATIVE: CASE EVENT DATE: 2018
